FAERS Safety Report 11516483 (Version 5)
Quarter: 2019Q3

REPORT INFORMATION
  Report Type: Spontaneous
  Country: US (occurrence: US)
  Receive Date: 20150917
  Receipt Date: 20190830
  Transmission Date: 20191004
  Serious: Yes (Hospitalization)
  Sender: FDA-Public Use
  Company Number: US-PFIZER INC-2015307383

PATIENT
  Age: 69 Year
  Sex: Male
  Weight: 86 kg

DRUGS (5)
  1. REVATIO [Suspect]
     Active Substance: SILDENAFIL CITRATE
     Indication: CHRONIC OBSTRUCTIVE PULMONARY DISEASE
     Dosage: 2 DF, 2X/DAY
     Route: 048
     Dates: start: 2012
  2. REVATIO [Suspect]
     Active Substance: SILDENAFIL CITRATE
     Dosage: 40 MG, 2X/DAY, (TAKE 2 TABLETS BY MOUTH TWICE A DAY)
     Route: 048
  3. REVATIO [Suspect]
     Active Substance: SILDENAFIL CITRATE
     Dosage: 20 MG, 2X/DAY
     Route: 048
  4. REVATIO [Suspect]
     Active Substance: SILDENAFIL CITRATE
     Indication: PULMONARY HYPERTENSION
     Dosage: 40 MG, 2X/DAY
     Route: 048
     Dates: start: 2009
  5. REVATIO [Suspect]
     Active Substance: SILDENAFIL CITRATE
     Indication: FIBROSIS
     Dosage: 20 MG, 4X/DAY

REACTIONS (2)
  - Nasopharyngitis [Not Recovered/Not Resolved]
  - Intentional product use issue [Unknown]

NARRATIVE: CASE EVENT DATE: 2012
